FAERS Safety Report 9289110 (Version 1)
Quarter: 2013Q2

REPORT INFORMATION
  Report Type: Spontaneous
  Country: US (occurrence: None)
  Receive Date: 20130509
  Receipt Date: 20130509
  Transmission Date: 20140414
  Serious: Yes (Other)
  Sender: FDA-Public Use
  Company Number: ACO_35790_2013

PATIENT
  Age: 68 Year
  Sex: Female
  Weight: 54.4 kg

DRUGS (11)
  1. AMPYRA [Suspect]
     Indication: PRODUCT USED FOR UNKNOWN INDICATION
  2. KLOR-CON M10 (POTASSIUM CHLORIDE) [Concomitant]
  3. BACLOFEN (BACLOFEN) [Concomitant]
  4. DETROL LA (TOLTERODINE L-TARTRATE) [Concomitant]
  5. AMANTADINE (AMANTADINE HYDROCHLORIDE) [Concomitant]
  6. SYNTHROID (LEVOTHYROXINE SODIUM) [Concomitant]
  7. EVISTA (RALOXIFENE HYDROCHLORIDE) [Concomitant]
  8. OSCAL (CALCITRIOL) [Concomitant]
  9. VITAMIN D (ERGOCALCIFEROL) [Concomitant]
  10. FOLIC ACID (FOLIC ACID) [Concomitant]
  11. LIDOCAINE (LIDOCAINE HYDROCHLORIDE) [Concomitant]

REACTIONS (2)
  - Hallucination [None]
  - Incorrect dose administered [None]
